FAERS Safety Report 12282101 (Version 1)
Quarter: 2016Q2

REPORT INFORMATION
  Report Type: Spontaneous
  Country: US (occurrence: None)
  Receive Date: 20160418
  Receipt Date: 20160418
  Transmission Date: 20160815
  Serious: Yes (Death)
  Sender: FDA-Public Use
  Company Number: None

PATIENT
  Age: 47 Year
  Sex: Female
  Weight: 48.08 kg

DRUGS (3)
  1. CIPRO [Suspect]
     Active Substance: CIPROFLOXACIN HYDROCHLORIDE
     Indication: URINARY TRACT INFECTION
     Route: 048
     Dates: start: 20150825, end: 20150831
  2. ZOLOFT [Concomitant]
     Active Substance: SERTRALINE HYDROCHLORIDE
  3. VITAMIN C [Concomitant]
     Active Substance: ASCORBIC ACID

REACTIONS (18)
  - Personality change [None]
  - Akathisia [None]
  - Hypoaesthesia [None]
  - Tachyphrenia [None]
  - Nightmare [None]
  - Pain of skin [None]
  - Anxiety [None]
  - Insomnia [None]
  - Self-injurious ideation [None]
  - Road traffic accident [None]
  - Cognitive disorder [None]
  - Fear [None]
  - Dizziness [None]
  - Skin disorder [None]
  - Neurotoxicity [None]
  - Confusional state [None]
  - Impaired driving ability [None]
  - Impaired work ability [None]

NARRATIVE: CASE EVENT DATE: 20150825
